FAERS Safety Report 16732660 (Version 15)
Quarter: 2022Q1

REPORT INFORMATION
  Report Type: Spontaneous
  Country: PL (occurrence: PL)
  Receive Date: 20190823
  Receipt Date: 20220317
  Transmission Date: 20220423
  Serious: Yes (Death, Life-Threatening, Hospitalization, Other)
  Sender: FDA-Public Use
  Company Number: None

PATIENT
  Age: 46 Year
  Sex: Female

DRUGS (58)
  1. AMOXICILLIN\CLAVULANIC ACID [Interacting]
     Active Substance: AMOXICILLIN\CLAVULANIC ACID
     Indication: Urinary tract infection
     Dosage: UNK
     Route: 065
  2. AMOXICILLIN\CLAVULANIC ACID [Interacting]
     Active Substance: AMOXICILLIN\CLAVULANIC ACID
     Indication: Bacterial test
  3. AMOXICILLIN\CLAVULANIC ACID [Interacting]
     Active Substance: AMOXICILLIN\CLAVULANIC ACID
     Indication: White blood cells urine
  4. AMOXICILLIN\CLAVULANIC ACID [Interacting]
     Active Substance: AMOXICILLIN\CLAVULANIC ACID
     Indication: Bacterial test positive
  5. AMOXICILLIN\CLAVULANIC ACID [Interacting]
     Active Substance: AMOXICILLIN\CLAVULANIC ACID
     Indication: Bacteriuria
  6. AMOXICILLIN\CLAVULANIC ACID [Interacting]
     Active Substance: AMOXICILLIN\CLAVULANIC ACID
     Indication: Antibiotic therapy
  7. AMOXICILLIN\CLAVULANIC ACID [Interacting]
     Active Substance: AMOXICILLIN\CLAVULANIC ACID
     Indication: Hyperleukocytosis
  8. ARIPIPRAZOLE [Interacting]
     Active Substance: ARIPIPRAZOLE
     Indication: Bipolar disorder
     Dosage: UNK
     Route: 048
  9. ARIPIPRAZOLE [Interacting]
     Active Substance: ARIPIPRAZOLE
     Dosage: 7.5 MILLIGRAM, ONCE A DAY
     Route: 048
  10. CEFUROXIME [Interacting]
     Active Substance: CEFUROXIME
     Indication: Bacterial infection
     Dosage: UNK
     Route: 065
  11. CEFUROXIME [Interacting]
     Active Substance: CEFUROXIME
     Indication: Urinary tract infection
     Dosage: 50 MILLIGRAM, ONCE A DAY
     Route: 048
  12. CEFUROXIME [Interacting]
     Active Substance: CEFUROXIME
     Indication: Bacterial test positive
  13. CEFUROXIME [Interacting]
     Active Substance: CEFUROXIME
     Indication: Bacteriuria
  14. CEFUROXIME [Interacting]
     Active Substance: CEFUROXIME
     Indication: Antibiotic therapy
  15. LEVOFLOXACIN [Interacting]
     Active Substance: LEVOFLOXACIN
     Indication: Urinary tract infection
     Dosage: UNK
     Route: 065
  16. LEVOFLOXACIN [Interacting]
     Active Substance: LEVOFLOXACIN
     Indication: Bacterial infection
  17. LEVOFLOXACIN [Interacting]
     Active Substance: LEVOFLOXACIN
     Indication: Trimethylaminuria
  18. LEVOFLOXACIN [Interacting]
     Active Substance: LEVOFLOXACIN
     Indication: Bacterial test positive
  19. LEVOFLOXACIN [Interacting]
     Active Substance: LEVOFLOXACIN
     Indication: Bacteriuria
  20. LEVOFLOXACIN [Interacting]
     Active Substance: LEVOFLOXACIN
     Indication: Antibiotic therapy
  21. LEVOFLOXACIN [Interacting]
     Active Substance: LEVOFLOXACIN
     Indication: Hyperleukocytosis
  22. PANTOPRAZOLE [Interacting]
     Active Substance: PANTOPRAZOLE
     Indication: Reflux gastritis
     Dosage: UNK
     Route: 048
  23. PANTOPRAZOLE [Interacting]
     Active Substance: PANTOPRAZOLE
     Indication: Gastrooesophageal reflux disease
     Dosage: 40 MILLIGRAM, ONCE A DAY
     Route: 048
  24. PANTOPRAZOLE [Interacting]
     Active Substance: PANTOPRAZOLE
     Dosage: 10 MILLIGRAM, ONCE A DAY
     Route: 048
  25. CEFUROXIME AXETIL [Interacting]
     Active Substance: CEFUROXIME AXETIL
     Indication: Urinary tract infection
     Dosage: 150 MILLIGRAM, ONCE A DAY
     Route: 048
  26. CEFUROXIME AXETIL [Interacting]
     Active Substance: CEFUROXIME AXETIL
     Indication: Antibiotic therapy
  27. CEFUROXIME AXETIL [Interacting]
     Active Substance: CEFUROXIME AXETIL
     Indication: Bacteraemia
  28. CEFUROXIME AXETIL [Interacting]
     Active Substance: CEFUROXIME AXETIL
     Indication: Hyperleukocytosis
  29. COTRIMOXAZOLE [Interacting]
     Active Substance: SULFAMETHOXAZOLE\TRIMETHOPRIM
     Indication: Bacterial infection
     Dosage: UNK
     Route: 065
  30. COTRIMOXAZOLE [Interacting]
     Active Substance: SULFAMETHOXAZOLE\TRIMETHOPRIM
     Indication: Urinary tract infection
  31. COTRIMOXAZOLE [Interacting]
     Active Substance: SULFAMETHOXAZOLE\TRIMETHOPRIM
     Indication: Bacterial test positive
  32. COTRIMOXAZOLE [Interacting]
     Active Substance: SULFAMETHOXAZOLE\TRIMETHOPRIM
     Indication: Bacteriuria
  33. COTRIMOXAZOLE [Interacting]
     Active Substance: SULFAMETHOXAZOLE\TRIMETHOPRIM
     Indication: Antibiotic therapy
  34. CIPROFLOXACIN [Interacting]
     Active Substance: CIPROFLOXACIN
     Indication: Urinary tract infection
     Dosage: UNK
     Route: 065
  35. CIPROFLOXACIN [Interacting]
     Active Substance: CIPROFLOXACIN
     Indication: Leukocytosis
  36. CIPROFLOXACIN [Interacting]
     Active Substance: CIPROFLOXACIN
     Indication: Bacterial test
  37. CIPROFLOXACIN [Interacting]
     Active Substance: CIPROFLOXACIN
     Indication: Trimethylaminuria
  38. CIPROFLOXACIN [Interacting]
     Active Substance: CIPROFLOXACIN
     Indication: Bacterial test positive
  39. CIPROFLOXACIN [Interacting]
     Active Substance: CIPROFLOXACIN
     Indication: Bacteriuria
  40. CIPROFLOXACIN [Interacting]
     Active Substance: CIPROFLOXACIN
     Indication: Antibiotic therapy
  41. CIPROFLOXACIN [Interacting]
     Active Substance: CIPROFLOXACIN
     Indication: Hyperleukocytosis
  42. OLANZAPINE [Interacting]
     Active Substance: OLANZAPINE
     Indication: Bipolar disorder
     Dosage: UNK
     Route: 048
  43. OLANZAPINE [Interacting]
     Active Substance: OLANZAPINE
     Dosage: 10 MILLIGRAM, ONCE A DAY
     Route: 048
  44. ITOPRIDE [Interacting]
     Active Substance: ITOPRIDE
     Indication: Gastrooesophageal reflux disease
     Dosage: 50 MILLIGRAM, ONCE A DAY
     Route: 048
  45. ITOPRIDE [Interacting]
     Active Substance: ITOPRIDE
     Indication: Reflux gastritis
     Dosage: 150 MILLIGRAM, DAILY, 50 MG, TID
     Route: 048
  46. ITOPRIDE [Interacting]
     Active Substance: ITOPRIDE
     Dosage: 50 MILLIGRAM, TWO TIMES A DAY
     Route: 048
  47. ITOPRIDE [Interacting]
     Active Substance: ITOPRIDE
     Dosage: 50 MILLIGRAM, 3 TIMES A DAY
     Route: 065
  48. NIFUROXAZIDE [Interacting]
     Active Substance: NIFUROXAZIDE
     Indication: Diarrhoea
     Dosage: UNK
     Route: 065
  49. NIFUROXAZIDE [Interacting]
     Active Substance: NIFUROXAZIDE
     Indication: Abdominal pain
  50. NIFUROXAZIDE [Interacting]
     Active Substance: NIFUROXAZIDE
     Indication: Trimethylaminuria
  51. NIFUROXAZIDE [Interacting]
     Active Substance: NIFUROXAZIDE
     Indication: Urinary tract infection
  52. SULFAMETHOXAZOLE [Interacting]
     Active Substance: SULFAMETHOXAZOLE
     Indication: Hyperleukocytosis
     Dosage: UNK
     Route: 065
  53. SULFAMETHOXAZOLE\TRIMETHOPRIM [Suspect]
     Active Substance: SULFAMETHOXAZOLE\TRIMETHOPRIM
     Indication: Antibiotic therapy
     Dosage: UNK
     Route: 065
  54. SULFAMETHOXAZOLE\TRIMETHOPRIM [Suspect]
     Active Substance: SULFAMETHOXAZOLE\TRIMETHOPRIM
     Indication: Bacterial infection
  55. SULFAMETHOXAZOLE\TRIMETHOPRIM [Suspect]
     Active Substance: SULFAMETHOXAZOLE\TRIMETHOPRIM
     Indication: Urinary tract infection
  56. SULFAMETHOXAZOLE\TRIMETHOPRIM [Suspect]
     Active Substance: SULFAMETHOXAZOLE\TRIMETHOPRIM
     Indication: Hyperleukocytosis
  57. TRIMETHOPRIM [Suspect]
     Active Substance: TRIMETHOPRIM
     Indication: Bacteriuria
     Dosage: UNK
     Route: 065
  58. ARIPIPRAZOLE [Concomitant]
     Active Substance: ARIPIPRAZOLE
     Indication: Bipolar disorder
     Dosage: 7.5 MILLIGRAM, ONCE A DAY
     Route: 065

REACTIONS (29)
  - Intestinal perforation [Fatal]
  - Peritonitis [Fatal]
  - Pseudomembranous colitis [Fatal]
  - Megacolon [Fatal]
  - Dyspepsia [Fatal]
  - Abdominal pain upper [Fatal]
  - Drug interaction [Fatal]
  - Condition aggravated [Fatal]
  - Gastrooesophageal reflux disease [Fatal]
  - White blood cells urine positive [Fatal]
  - Bacterial test positive [Fatal]
  - Pyrexia [Fatal]
  - Parosmia [Fatal]
  - Clostridium difficile infection [Fatal]
  - Diarrhoea [Fatal]
  - Trimethylaminuria [Fatal]
  - Death [Fatal]
  - Potentiating drug interaction [Unknown]
  - Dysbiosis [Fatal]
  - Inhibitory drug interaction [Fatal]
  - Drug resistance [Fatal]
  - Urine odour abnormal [Fatal]
  - Breath odour [Fatal]
  - Oral discomfort [Fatal]
  - Drug ineffective [Fatal]
  - Abdominal pain [Not Recovered/Not Resolved]
  - Taste disorder [Not Recovered/Not Resolved]
  - White blood cells urine [Unknown]
  - Product use in unapproved indication [Unknown]
